FAERS Safety Report 18192068 (Version 4)
Quarter: 2020Q4

REPORT INFORMATION
  Report Type: Spontaneous
  Country: US (occurrence: US)
  Receive Date: 20200825
  Receipt Date: 20201208
  Transmission Date: 20210113
  Serious: Yes (Other)
  Sender: FDA-Public Use
  Company Number: US-BAYER-2017-198852

PATIENT
  Age: 33 Year
  Sex: Female
  Weight: 74.83 kg

DRUGS (7)
  1. IMITREX [Concomitant]
     Active Substance: SUMATRIPTAN SUCCINATE
     Dosage: UNK
     Dates: start: 2019
  2. MIRENA [Suspect]
     Active Substance: LEVONORGESTREL
     Indication: MENORRHAGIA
     Dosage: 20 ?G PER DAY, CONTINUOUSLY
     Route: 015
  3. IRON [Concomitant]
     Active Substance: IRON
  4. NAPROXEN. [Concomitant]
     Active Substance: NAPROXEN
     Dosage: UNK
     Dates: start: 2011
  5. ZOLOFT [Concomitant]
     Active Substance: SERTRALINE HYDROCHLORIDE
     Dosage: UNK
     Dates: start: 2015
  6. MIRENA [Suspect]
     Active Substance: LEVONORGESTREL
     Indication: CONTRACEPTION
  7. MICROGESTIN [Concomitant]
     Active Substance: ETHINYL ESTRADIOL\NORETHINDRONE ACETATE

REACTIONS (42)
  - Pelvic pain [Unknown]
  - Dysmenorrhoea [Unknown]
  - Orgasm abnormal [Unknown]
  - Arthralgia [Unknown]
  - Hot flush [Unknown]
  - Genital haemorrhage [Unknown]
  - Abdominal pain lower [Unknown]
  - Dysmenorrhoea [Recovering/Resolving]
  - Pain in extremity [Unknown]
  - Alopecia [Unknown]
  - Insomnia [Unknown]
  - Menorrhagia [Recovered/Resolved]
  - Vaginal haemorrhage [Recovering/Resolving]
  - Breast pain [Unknown]
  - Abdominal pain [Unknown]
  - Dyspareunia [Recovering/Resolving]
  - Pain [Unknown]
  - Iron deficiency anaemia [Unknown]
  - Depression [Recovering/Resolving]
  - Weight increased [Unknown]
  - Anxiety [Unknown]
  - Sciatica [Unknown]
  - Urinary tract infection [Recovering/Resolving]
  - Muscular weakness [Unknown]
  - Pelvic inflammatory disease [Unknown]
  - Device dislocation [Recovered/Resolved]
  - Abdominal distension [Unknown]
  - Headache [Unknown]
  - Migraine [Recovering/Resolving]
  - Fatigue [Unknown]
  - Adnexa uteri cyst [Unknown]
  - Stress [Unknown]
  - Musculoskeletal pain [Unknown]
  - Chest pain [Unknown]
  - Fatigue [Unknown]
  - Back pain [Unknown]
  - Dental caries [Unknown]
  - Ovarian cyst [Unknown]
  - Temperature intolerance [Unknown]
  - Vaginal haemorrhage [Unknown]
  - Cyst [Unknown]
  - Hemiparaesthesia [Unknown]

NARRATIVE: CASE EVENT DATE: 20090129
